FAERS Safety Report 12208373 (Version 1)
Quarter: 2016Q1

REPORT INFORMATION
  Report Type: Spontaneous
  Country: US (occurrence: US)
  Receive Date: 20160324
  Receipt Date: 20160324
  Transmission Date: 20160526
  Serious: Yes (Other)
  Sender: FDA-Public Use
  Company Number: US-TEVA-644774USA

PATIENT
  Sex: Female

DRUGS (1)
  1. COPAXONE [Suspect]
     Active Substance: GLATIRAMER ACETATE
     Indication: PRODUCT USED FOR UNKNOWN INDICATION
     Dosage: UNKNOWN FORM STRENGTH

REACTIONS (5)
  - Injection site reaction [Unknown]
  - Bedridden [Unknown]
  - Polycythaemia vera [Unknown]
  - Haemochromatosis [Unknown]
  - Uveitis [Unknown]

NARRATIVE: CASE EVENT DATE: 2008
